FAERS Safety Report 6331607-2 (Version None)
Quarter: 2009Q3

REPORT INFORMATION
  Report Type: 
  Country: None (occurrence: None)
  Receive Date: 20090827
  Receipt Date: 20090818
  Transmission Date: 20100115
  Serious: Yes (Other)
  Sender: FDA-Public Use
  Company Number: PHHY2009BR35297

PATIENT
  Age: 52 Year
  Sex: Male

DRUGS (1)
  1. LEPONEX [Suspect]
     Indication: SCHIZOPHRENIA, RESIDUAL TYPE
     Dosage: 600 MG/DAY`

REACTIONS (1)
  - INGUINAL HERNIA [None]
